FAERS Safety Report 7900339-9 (Version None)
Quarter: 2011Q4

REPORT INFORMATION
  Report Type: 
  Country: None (occurrence: None)
  Receive Date: 20111108
  Receipt Date: 20111027
  Transmission Date: 20120403
  Serious: Yes (Other)
  Sender: FDA-Public Use
  Company Number: CA-JNJFOC-20110701945

PATIENT
  Sex: Male
  Weight: 44 kg

DRUGS (6)
  1. REMICADE [Suspect]
     Route: 042
     Dates: start: 20111027
  2. TYLENOL-500 [Concomitant]
     Indication: PREMEDICATION
     Route: 048
  3. BENADRYL [Concomitant]
     Indication: PREMEDICATION
     Route: 042
  4. HYDROCORTISONE [Concomitant]
     Indication: PREMEDICATION
     Route: 042
  5. REMICADE [Suspect]
     Indication: CROHN'S DISEASE
     Route: 042
  6. REMICADE [Suspect]
     Route: 042
     Dates: start: 20110505

REACTIONS (5)
  - INFUSION RELATED REACTION [None]
  - FLUSHING [None]
  - BRONCHOSPASM [None]
  - COUGH [None]
  - DYSPNOEA [None]
